FAERS Safety Report 6587876-7 (Version None)
Quarter: 2010Q1

REPORT INFORMATION
  Report Type: 
  Country: None (occurrence: None)
  Receive Date: 20100217
  Receipt Date: 20100217
  Transmission Date: 20100710
  Serious: Yes (Other)
  Sender: FDA-Public Use
  Company Number: None

PATIENT
  Age: 52 Year
  Sex: Male
  Weight: 97.5234 kg

DRUGS (1)
  1. METHOTREXATE [Suspect]
     Indication: PSORIATIC ARTHROPATHY
     Dosage: 20 MG 1X WEEK ORAL
     Route: 048

REACTIONS (4)
  - DRUG INEFFECTIVE [None]
  - HEAD INJURY [None]
  - JOINT INJURY [None]
  - LOSS OF CONSCIOUSNESS [None]
